FAERS Safety Report 14567522 (Version 2)
Quarter: 2019Q2

REPORT INFORMATION
  Report Type: Spontaneous
  Country: US (occurrence: US)
  Receive Date: 20180223
  Receipt Date: 20190501
  Transmission Date: 20190711
  Serious: Yes (Hospitalization, Other)
  Sender: FDA-Public Use
  Company Number: US-PFIZER INC-2018073292

PATIENT
  Age: 85 Year
  Sex: Female

DRUGS (16)
  1. GABAPENTIN. [Suspect]
     Active Substance: GABAPENTIN
     Dosage: 100 MG, 1X/DAY (ONE 100MG CAPSULES BY MOUTH ONCE A NIGHT)
     Dates: end: 201801
  2. DELZICOL [Concomitant]
     Active Substance: MESALAMINE
     Indication: GASTROINTESTINAL DISORDER
     Dosage: 800 MG, 2X/DAY (400MG CAPSULE. 2 CAPSULES BY MOUTH TWICE DAILY)
     Route: 048
     Dates: start: 2010
  3. RESTORE [Concomitant]
     Active Substance: GLYCERIN
     Indication: EYE DISORDER
     Dosage: 1 DF, DAILY (1 PILL DAILY BY MOUTH)
     Route: 048
     Dates: start: 2017
  4. ASPIRIN. [Concomitant]
     Active Substance: ASPIRIN
     Indication: CEREBROVASCULAR ACCIDENT PROPHYLAXIS
  5. VERAPAMIL [Concomitant]
     Active Substance: VERAPAMIL HYDROCHLORIDE
     Indication: BLOOD PRESSURE ABNORMAL
     Dosage: 240 MG, 1X/DAY (240MG CAPSULE BY MOUTH ONCE DAILY)
     Route: 048
     Dates: start: 2010
  6. LOSARTAN POTASSIUM. [Concomitant]
     Active Substance: LOSARTAN POTASSIUM
     Indication: BLOOD PRESSURE ABNORMAL
     Dosage: 50 MG, 1X/DAY (50MG TABLET BY MOUTH ONCE DAILY)
     Route: 048
  7. HYDROCHLOROTHIAZIDE. [Concomitant]
     Active Substance: HYDROCHLOROTHIAZIDE
     Indication: BLOOD PRESSURE ABNORMAL
     Dosage: 25MG TABLETS.  1/2 TABLET DAILY BY MOUTH
     Route: 048
  8. PROBIOTIC ACIDOPHILUS [Concomitant]
     Active Substance: LACTOBACILLUS ACIDOPHILUS
     Indication: GASTROINTESTINAL DISORDER
     Dosage: 1 DF, 2X/DAY (1 CAPSULE TWICE DAILY WITH FOOD)
     Dates: start: 2010
  9. VITAMIN D3 [Concomitant]
     Active Substance: CHOLECALCIFEROL
     Indication: SUPPLEMENTATION THERAPY
     Dosage: 125 MG, 1X/DAY (125MG SOFT GEL BY MOUTH ONCE DAILY)
     Route: 048
  10. GLUCOSAMINE CHONDROITIN MSM [Concomitant]
     Indication: ARTHROPATHY
     Dosage: 1 DF, DAILY (1 TABLET DAILY BY MOUTH)
     Route: 048
     Dates: start: 2010
  11. GABAPENTIN. [Suspect]
     Active Substance: GABAPENTIN
     Indication: NEUROPATHY PERIPHERAL
     Dosage: 200 MG, 2X/DAY(100MG CAPSULE 2 CAPSULES IN THE MORNING AND 2 CAPSULES AT NIGHT)
     Dates: start: 2016
  12. POTASSIUM [Concomitant]
     Active Substance: POTASSIUM
     Indication: SUPPLEMENTATION THERAPY
     Dosage: 99 MG, 1X/DAY (99MG TABLET BY MOUTH ONCE DAILY)
     Route: 048
  13. BARLEY GREEN [Concomitant]
     Indication: SUPPLEMENTATION THERAPY
     Dosage: SOMETIMES TAKES CAPSULES AND SOMETIMES TAKES POWDER
     Dates: start: 1987
  14. ALOE VERA [Concomitant]
     Active Substance: ALOE VERA LEAF
     Dosage: UNK, 2X/DAY
     Dates: start: 2010
  15. ASPIRIN. [Concomitant]
     Active Substance: ASPIRIN
     Indication: PROPHYLAXIS
     Dosage: 81 MG, DAILY (81MG TABLET BY MOUTH DAILY)
     Route: 048
  16. VITAMIN B12 [Concomitant]
     Active Substance: CYANOCOBALAMIN
     Indication: SUPPLEMENTATION THERAPY
     Dosage: 1000 MG, 1X/DAY (1000MG TABLET BY MOUTH ONCE DAILY)
     Route: 048
     Dates: start: 2010

REACTIONS (6)
  - Visual impairment [Recovered/Resolved]
  - Feeling abnormal [Recovering/Resolving]
  - Memory impairment [Recovered/Resolved]
  - Product use in unapproved indication [Unknown]
  - Cataract [Recovered/Resolved]
  - Pruritus [Recovered/Resolved]

NARRATIVE: CASE EVENT DATE: 2016
